FAERS Safety Report 4316444-2 (Version None)
Quarter: 2004Q1

REPORT INFORMATION
  Report Type: 
  Country: None (occurrence: None)
  Receive Date: 20040311
  Receipt Date: 20040225
  Transmission Date: 20041129
  Serious: Yes (Hospitalization)
  Sender: FDA-Public Use
  Company Number: 2000-BP-02250

PATIENT
  Age: 5 Day
  Sex: Female

DRUGS (2)
  1. VIRAMUNE [Suspect]
     Indication: HUMAN IMMUNODEFICIENCY VIRUS TRANSMISSION
     Dosage: 1.1 ML (NR) PO
     Route: 048
     Dates: start: 20001109, end: 20001109
  2. VIRAMUNE [Suspect]
     Indication: PROPHYLAXIS AGAINST HIV INFECTION
     Dosage: 1.1 ML (NR) PO
     Route: 048
     Dates: start: 20001109, end: 20001109

REACTIONS (10)
  - CSF LYMPHOCYTE COUNT INCREASED [None]
  - CSF WHITE BLOOD CELL COUNT POSITIVE [None]
  - IRRITABILITY [None]
  - MATERNAL DRUGS AFFECTING FOETUS [None]
  - NEONATAL DISORDER [None]
  - NEUTROPHIL TOXIC GRANULATION PRESENT [None]
  - RED BLOOD CELLS CSF POSITIVE [None]
  - SEBACEOUS HYPERPLASIA [None]
  - SKIN DESQUAMATION [None]
  - UMBILICAL SEPSIS [None]
